FAERS Safety Report 6158938-3 (Version None)
Quarter: 2009Q2

REPORT INFORMATION
  Report Type: 
  Country: None (occurrence: None)
  Receive Date: 20090408
  Receipt Date: 20090330
  Transmission Date: 20091009
  Serious: Yes (Other)
  Sender: FDA-Public Use
  Company Number: THYM-1000996

PATIENT
  Age: 43 Year
  Sex: Male
  Weight: 50 kg

DRUGS (4)
  1. THYMOGLOBULIN [Suspect]
     Indication: STEM CELL TRANSPLANT
     Dosage: 125 MG, QD, INTRAVENOUS; 2.5 MG, ONCE, INTRAVENOUS
     Route: 042
     Dates: start: 20090329
  2. THYMOGLOBULIN [Suspect]
     Indication: STEM CELL TRANSPLANT
     Dosage: 125 MG, QD, INTRAVENOUS; 2.5 MG, ONCE, INTRAVENOUS
     Route: 042
     Dates: start: 20090329
  3. FLUDARABINE PHOSPHATE [Concomitant]
  4. CYCLOPHOSPHAMIDE [Concomitant]

REACTIONS (5)
  - BLOOD PRESSURE INCREASED [None]
  - CHILLS [None]
  - OXYGEN SATURATION DECREASED [None]
  - PYREXIA [None]
  - TACHYCARDIA [None]
